FAERS Safety Report 11076371 (Version 1)
Quarter: 2015Q2

REPORT INFORMATION
  Report Type: Spontaneous
  Country: US (occurrence: US)
  Receive Date: 20150429
  Receipt Date: 20150429
  Transmission Date: 20150821
  Serious: Yes (Hospitalization, Other)
  Sender: FDA-Public Use
  Company Number: US-PFIZER INC-2014304484

PATIENT
  Age: 63 Year
  Sex: Female

DRUGS (1)
  1. REVATIO [Suspect]
     Active Substance: SILDENAFIL CITRATE
     Dosage: 20 MGX 3 TABLETS (60 MG), THREE TIMES DAILY
     Route: 048
     Dates: start: 20141031

REACTIONS (2)
  - Prescribed overdose [Unknown]
  - Lung disorder [Unknown]

NARRATIVE: CASE EVENT DATE: 20141031
